FAERS Safety Report 19373775 (Version 2)
Quarter: 2021Q2

REPORT INFORMATION
  Report Type: Report from Study
  Country: CN (occurrence: CN)
  Receive Date: 20210603
  Receipt Date: 20210614
  Transmission Date: 20210717
  Serious: Yes (Hospitalization)
  Sender: FDA-Public Use
  Company Number: CN-PFIZER INC-2021634627

PATIENT
  Age: 54 Year
  Sex: Male
  Weight: 50 kg

DRUGS (22)
  1. POTASSIUM CHLORIDE. [Concomitant]
     Active Substance: POTASSIUM CHLORIDE
     Indication: MINERAL SUPPLEMENTATION
     Dosage: 10 ML, 1X/DAY, INTRAVENOUS INFUSION
     Route: 041
     Dates: start: 20210514, end: 20210516
  2. AMANTADINE HYDROCHLORIDE/CHLORPHENAMINE MALEATE/PARACETAMOL [Concomitant]
     Dosage: 2 CAPSULES, 2X/DAY
     Route: 048
     Dates: start: 20210505, end: 20210508
  3. ONDANSETRON HYDROCHLORIDE. [Concomitant]
     Active Substance: ONDANSETRON HYDROCHLORIDE
     Indication: VOMITING
     Dosage: 8 MG, 2X/DAY, INTRAVENOUS INFUSION
     Route: 041
     Dates: start: 20210514, end: 20210514
  4. VITAMIN B6 [Concomitant]
     Active Substance: PYRIDOXINE HYDROCHLORIDE
     Indication: VITAMIN SUPPLEMENTATION
     Dosage: 200 MG, 1X/DAY, INTRAVENOUS INFUSION
     Route: 041
     Dates: start: 20210514, end: 20210516
  5. CARBOPLATIN. [Suspect]
     Active Substance: CARBOPLATIN
     Dosage: 550 MG, 1X/3 WEEKS, INTRAVENOUS INFUSION, BOBEI
     Route: 041
     Dates: start: 20210423, end: 20210423
  6. CARBOPLATIN. [Suspect]
     Active Substance: CARBOPLATIN
     Dosage: 550 MG, 1X/3 WEEKS, INTRAVENOUS INFUSION, BOBEI
     Route: 041
     Dates: start: 20210514, end: 20210514
  7. DIPHENHYDRAMINE HYDROCHLORIDE. [Concomitant]
     Active Substance: DIPHENHYDRAMINE HYDROCHLORIDE
     Indication: ALLERGY PROPHYLAXIS
     Dosage: 50 MG, 1X/DAY, INTRAMUSCULAR INJECTION
     Route: 030
     Dates: start: 20210514, end: 20210514
  8. CIMETIDINE [Concomitant]
     Active Substance: CIMETIDINE
     Indication: ALLERGY PROPHYLAXIS
     Dosage: 300 MG, 1X/DAY,INTRAVENOUS INFUSION
     Route: 041
     Dates: start: 20210514, end: 20210514
  9. ANZATAX [PACLITAXEL] [Suspect]
     Active Substance: PACLITAXEL
     Indication: SQUAMOUS CELL CARCINOMA OF LUNG
     Dosage: 267 MG, 1X/3 WEEKS, INTRAVENOUS INFUSION
     Route: 041
     Dates: start: 20210401, end: 20210423
  10. CELECOXIB. [Concomitant]
     Active Substance: CELECOXIB
     Indication: ARTHRALGIA
     Dosage: 200 MG, 1X/DAY
     Route: 048
     Dates: start: 20210425, end: 20210517
  11. PANTOPRAZOLE SODIUM. [Concomitant]
     Active Substance: PANTOPRAZOLE SODIUM
     Indication: PROPHYLAXIS
     Dosage: 40 MG, 1X/DAY, ENTERIC?COATED CAPSULES
     Route: 048
     Dates: start: 20210514, end: 20210520
  12. CARBOPLATIN. [Suspect]
     Active Substance: CARBOPLATIN
     Indication: SQUAMOUS CELL CARCINOMA OF LUNG
     Dosage: 450 MG, 1X/3 WEEKS, INTRAVENOUS INFUSION, BOBEI
     Route: 041
     Dates: start: 20210401, end: 20210401
  13. COMPOUND SODIUM CHLORIDE [HYETELLOSE;POTASSIUM CHLORIDE;SODIUM CHLORID [Concomitant]
     Indication: FLUID REPLACEMENT
     Dosage: 500 ML, 1X/DAY, INTRAVENOUS INFUSION
     Route: 041
     Dates: start: 20210514, end: 20210516
  14. ENTERAL NUTRITIONAL POWDER(TP) [Concomitant]
     Indication: NUTRITIONAL SUPPLEMENTATION
     Dosage: 55.8 G, 3X/DAY
     Route: 048
     Dates: start: 20210514
  15. ANZATAX [PACLITAXEL] [Suspect]
     Active Substance: PACLITAXEL
     Dosage: 266 MG, 1X/3 WEEKS, INTRAVENOUS INFUSION
     Route: 041
     Dates: start: 20210514, end: 20210514
  16. DEXAMETHASONE ACETATE [Concomitant]
     Active Substance: DEXAMETHASONE ACETATE
     Indication: ALLERGY PROPHYLAXIS
     Dosage: 10000 UG, 1X/DAY
     Route: 048
     Dates: start: 20210513, end: 20210514
  17. COMPOUND AMINO ACID (18AA?VII) [Concomitant]
     Indication: NUTRITIONAL SUPPLEMENTATION
     Dosage: 200 ML, 1X/DAY, INTRAVENOUS INFUSION
     Route: 041
     Dates: start: 20210516, end: 20210516
  18. BLINDED THERAPY [Suspect]
     Active Substance: INVESTIGATIONAL PRODUCT
     Indication: SQUAMOUS CELL CARCINOMA OF LUNG
     Dosage: UNK, EVERY 3 WEEKS, INTRAVENOUS INFUSION
     Route: 041
     Dates: start: 20210401, end: 20210513
  19. AMOXICILLIN AND CLAVULANATE POTASSIUM [AMOXICILLIN SODIUM;CLAVULANATE [Concomitant]
     Active Substance: AMOXICILLIN\CLAVULANATE POTASSIUM
     Indication: UPPER RESPIRATORY TRACT INFECTION
     Dosage: 1 TABLET, 1X/DAY
     Route: 048
     Dates: start: 20210505, end: 20210508
  20. DEXAMETHASONE SODIUM PHOSPHATE. [Concomitant]
     Active Substance: DEXAMETHASONE SODIUM PHOSPHATE
     Indication: INFUSION RELATED REACTION
     Dosage: 5 MG, 1X/DAY, INTRAVENOUS INFUSION
     Route: 041
     Dates: start: 20210513, end: 20210513
  21. FOSAPREPITANT DIMEGLUMINE. [Concomitant]
     Active Substance: FOSAPREPITANT DIMEGLUMINE
     Indication: VOMITING
     Dosage: 150 MG, 1X/DAY,INTRAVENOUS INFUSION
     Route: 041
     Dates: start: 20210514, end: 20210514
  22. CEFUROXIME AXETIL. [Concomitant]
     Active Substance: CEFUROXIME AXETIL
     Indication: OTITIS MEDIA
     Dosage: 1 TABLET, 2X/DAY
     Route: 048
     Dates: start: 20210514, end: 20210516

REACTIONS (1)
  - Haemoptysis [Recovered/Resolved]

NARRATIVE: CASE EVENT DATE: 20210518
